FAERS Safety Report 8274080-X (Version None)
Quarter: 2012Q2

REPORT INFORMATION
  Report Type: 
  Country: None (occurrence: None)
  Receive Date: 20120409
  Receipt Date: 20120405
  Transmission Date: 20120825
  Serious: Yes (Hospitalization, Other)
  Sender: FDA-Public Use
  Company Number: ADR-2011-11195

PATIENT
  Age: 66 Year
  Sex: Female
  Weight: 82 kg

DRUGS (2)
  1. SEE B5 [Concomitant]
  2. LIORESAL [Suspect]
     Indication: MUSCLE SPASTICITY
     Dosage: 27.2 MCG, DAILY, INTRAT
     Route: 037

REACTIONS (5)
  - THERAPEUTIC RESPONSE DECREASED [None]
  - PARAESTHESIA [None]
  - LUMBAR SPINAL STENOSIS [None]
  - SKIN LESION [None]
  - INTERVERTEBRAL DISC SPACE NARROWING [None]
